FAERS Safety Report 7838152-3 (Version None)
Quarter: 2011Q4

REPORT INFORMATION
  Report Type: 
  Country: None (occurrence: None)
  Receive Date: 20111024
  Receipt Date: 20111013
  Transmission Date: 20120403
  Serious: Yes (Hospitalization, Other)
  Sender: FDA-Public Use
  Company Number: US-ASTRAZENECA-2011SE62100

PATIENT
  Sex: Female

DRUGS (11)
  1. CELEXA [Suspect]
     Route: 065
  2. ENTOCORT EC [Suspect]
     Dosage: DAILY
     Route: 048
  3. VALTREX [Suspect]
     Route: 065
  4. VITAMIN D [Suspect]
     Dosage: AS NEEDED
     Route: 065
  5. FLECTOR [Suspect]
     Dosage: AS NEEDED
     Route: 065
  6. IRON [Suspect]
     Route: 065
  7. MULTI-VITAMIN [Suspect]
     Route: 065
  8. FEMHRT [Suspect]
     Route: 065
  9. TRAMADOL HCL [Suspect]
     Route: 065
  10. NEXIUM [Suspect]
     Dosage: TWO TIMES A DAY
     Route: 048
  11. XANAX [Suspect]
     Route: 065

REACTIONS (29)
  - OROPHARYNGEAL PAIN [None]
  - IRON DEFICIENCY [None]
  - ADHESION [None]
  - FATIGUE [None]
  - NASAL DISORDER [None]
  - DIZZINESS [None]
  - FALL [None]
  - ABDOMINAL PAIN LOWER [None]
  - INFLAMMATORY BOWEL DISEASE [None]
  - GASTROOESOPHAGEAL REFLUX DISEASE [None]
  - FIBROMYALGIA [None]
  - INCONTINENCE [None]
  - ONYCHOCLASIS [None]
  - WEIGHT INCREASED [None]
  - ADRENAL INSUFFICIENCY [None]
  - IMPAIRED GASTRIC EMPTYING [None]
  - SLEEP DISORDER [None]
  - VITAMIN D DECREASED [None]
  - ARTHROPATHY [None]
  - GASTRIC ULCER [None]
  - PYLORIC STENOSIS [None]
  - BREAST DISCHARGE [None]
  - PRESYNCOPE [None]
  - ANAEMIA [None]
  - IRRITABLE BOWEL SYNDROME [None]
  - THERMAL BURN [None]
  - TRANSFERRIN SATURATION DECREASED [None]
  - CONTUSION [None]
  - BONE DISORDER [None]
